FAERS Safety Report 17740324 (Version 5)
Quarter: 2020Q3

REPORT INFORMATION
  Report Type: Spontaneous
  Country: US (occurrence: US)
  Receive Date: 20200504
  Receipt Date: 20200826
  Transmission Date: 20201102
  Serious: Yes (Other)
  Sender: FDA-Public Use
  Company Number: US-PFIZER INC-2020176394

PATIENT
  Age: 66 Year
  Sex: Female
  Weight: 73 kg

DRUGS (10)
  1. IBRANCE [Suspect]
     Active Substance: PALBOCICLIB
     Indication: BREAST CANCER FEMALE
     Dosage: 125 MG, CYCLIC (DAILY DAYS 1?21 OF 28)
     Route: 048
     Dates: start: 20200415
  2. IBRANCE [Suspect]
     Active Substance: PALBOCICLIB
     Dosage: 100 MG, CYCLIC (DAYS 1?21 OF 28 DAYS)
     Route: 048
     Dates: start: 20200415
  3. ACAI + SUPERFRUIT [Concomitant]
     Dosage: UNK
  4. EMERGEN?C [Concomitant]
     Active Substance: VITAMINS
     Dosage: UNK
  5. SYNTHROID [Concomitant]
     Active Substance: LEVOTHYROXINE SODIUM
     Dosage: 125 UG
  6. IBRANCE [Suspect]
     Active Substance: PALBOCICLIB
     Dosage: UNK
  7. ECHINACEA [Concomitant]
     Active Substance: ECHINACEA, UNSPECIFIED
     Dosage: UNK
  8. VITAMIN E [Concomitant]
     Active Substance: .ALPHA.-TOCOPHEROL
     Dosage: UNK
  9. VITAMIN C [Concomitant]
     Active Substance: ASCORBIC ACID
     Dosage: UNK
  10. LETROZOLE. [Concomitant]
     Active Substance: LETROZOLE
     Dosage: UNK

REACTIONS (9)
  - Thyroid disorder [Unknown]
  - Fatigue [Unknown]
  - Blood pressure increased [Unknown]
  - Weight increased [Unknown]
  - Oral fungal infection [Unknown]
  - Blood thyroid stimulating hormone increased [Unknown]
  - Glycosylated haemoglobin increased [Unknown]
  - Feeling abnormal [Recovering/Resolving]
  - Condition aggravated [Unknown]

NARRATIVE: CASE EVENT DATE: 20200424
